FAERS Safety Report 5890125-6 (Version None)
Quarter: 2008Q3

REPORT INFORMATION
  Report Type: 
  Country: None (occurrence: None)
  Receive Date: 20080919
  Receipt Date: 20080911
  Transmission Date: 20090109
  Serious: Yes (Hospitalization)
  Sender: FDA-Public Use
  Company Number: US-B.I. PHARMACEUTICALS,INC./RIDGEFIELD-2008-BP-13380BP

PATIENT
  Age: 80 Year
  Sex: Male
  Weight: 73 kg

DRUGS (2)
  1. MIRAPEX [Suspect]
     Indication: PARKINSON'S DISEASE
  2. SINEMET [Concomitant]
     Dates: start: 20070101

REACTIONS (3)
  - ABNORMAL BEHAVIOUR [None]
  - FOREIGN BODY TRAUMA [None]
  - INTESTINAL PERFORATION [None]
